FAERS Safety Report 11536117 (Version 1)
Quarter: 2015Q3

REPORT INFORMATION
  Report Type: Spontaneous
  Country: US (occurrence: US)
  Receive Date: 20150903
  Receipt Date: 20150903
  Transmission Date: 20151125
  Serious: No
  Sender: FDA-Public Use
  Company Number: US-ELI_LILLY_AND_COMPANY-US201106006054

PATIENT
  Sex: Male

DRUGS (15)
  1. SPIRONOLACTONE. [Concomitant]
     Active Substance: SPIRONOLACTONE
  2. POTASSIUM CHLORIDE. [Concomitant]
     Active Substance: POTASSIUM CHLORIDE
  3. ASPIRIN                            /00346701/ [Concomitant]
     Dosage: 81 MG, UNK
  4. FUROSEMIDE. [Concomitant]
     Active Substance: FUROSEMIDE
     Dosage: UNK, QID
  5. HUMALOG MIX50/50 [Suspect]
     Active Substance: INSULIN LISPRO
     Indication: DIABETES MELLITUS
     Dosage: UNK
  6. GLUCOSE [Concomitant]
     Active Substance: DEXTROSE
  7. VENLAFAXINE [Concomitant]
     Active Substance: VENLAFAXINE HYDROCHLORIDE
  8. NEXIUM [Concomitant]
     Active Substance: ESOMEPRAZOLE MAGNESIUM
  9. GEMFIBROZIL. [Concomitant]
     Active Substance: GEMFIBROZIL
  10. GABAPENTIN. [Concomitant]
     Active Substance: GABAPENTIN
  11. HUMALOG MIX75/25 [Suspect]
     Active Substance: INSULIN LISPRO
     Indication: DIABETES MELLITUS
     Dosage: 100 U, BID
  12. PRAVASTATIN [Concomitant]
     Active Substance: PRAVASTATIN\PRAVASTATIN SODIUM
  13. HYDROCODONE [Concomitant]
     Active Substance: HYDROCODONE
  14. METOLAZONE. [Concomitant]
     Active Substance: METOLAZONE
  15. MAGNESIUM [Concomitant]
     Active Substance: MAGNESIUM

REACTIONS (5)
  - Tremor [Unknown]
  - Skin tightness [Unknown]
  - Pain in extremity [Unknown]
  - Blood glucose increased [Unknown]
  - Blood glucose decreased [Unknown]
